FAERS Safety Report 14340283 (Version 2)
Quarter: 2018Q1

REPORT INFORMATION
  Report Type: Report from Study
  Country: NL (occurrence: TH)
  Receive Date: 20180101
  Receipt Date: 20180305
  Transmission Date: 20180509
  Serious: Yes (Death)
  Sender: FDA-Public Use
  Company Number: NL-ROCHE-2047805

PATIENT
  Age: 52 Year
  Sex: Male
  Weight: 60 kg

DRUGS (4)
  1. RIBAVIRIN. [Suspect]
     Active Substance: RIBAVIRIN
     Indication: HEPATITIS C
     Route: 065
  2. RIBAVIRIN. [Suspect]
     Active Substance: RIBAVIRIN
     Indication: HIV INFECTION
  3. PEG-INTERFERON ALFA 2A [Suspect]
     Active Substance: PEGINTERFERON ALFA-2A
     Indication: HIV INFECTION
     Route: 065
  4. PEG-INTERFERON ALFA 2A [Suspect]
     Active Substance: PEGINTERFERON ALFA-2A
     Indication: HEPATITIS C
     Route: 065

REACTIONS (2)
  - Haemorrhage intracranial [Fatal]
  - Thrombocytopenia [Fatal]
